FAERS Safety Report 6252487-X (Version None)
Quarter: 2009Q2

REPORT INFORMATION
  Report Type: 
  Country: None (occurrence: None)
  Receive Date: 20090629
  Receipt Date: 20090629
  Transmission Date: 20091009
  Serious: No
  Sender: FDA-Public Use
  Company Number: None

PATIENT
  Age: 81 Year
  Sex: Male
  Weight: 73.9363 kg

DRUGS (5)
  1. AVODART [Suspect]
     Indication: BENIGN PROSTATIC HYPERPLASIA
     Dosage: 0.5 MG ONCE PO QD
     Route: 048
     Dates: start: 20090610
  2. AVODART [Suspect]
     Indication: BENIGN PROSTATIC HYPERPLASIA
     Dosage: 0.5 MG ONCE PO QD
     Route: 048
     Dates: start: 20090611
  3. ASPIRIN [Concomitant]
  4. COLBENIUM [Concomitant]
  5. XALATAN [Concomitant]

REACTIONS (1)
  - GENITAL PAIN [None]
